FAERS Safety Report 4834254-4 (Version None)
Quarter: 2005Q4

REPORT INFORMATION
  Report Type: 
  Country: None (occurrence: None)
  Receive Date: 20051122
  Receipt Date: 20050830
  Transmission Date: 20060501
  Serious: Yes (Hospitalization)
  Sender: FDA-Public Use
  Company Number: US-MERCK-0508USA05008

PATIENT
  Age: 56 Year
  Sex: Male
  Weight: 95 kg

DRUGS (8)
  1. VIOXX [Suspect]
     Indication: MONARTHRITIS
     Route: 048
     Dates: start: 20040112, end: 20040930
  2. ACTOS [Concomitant]
     Indication: DIABETES MELLITUS
     Route: 065
  3. ALLOPURINOL [Concomitant]
     Indication: GOUT
     Route: 065
  4. BENADRYL [Concomitant]
     Route: 065
  5. LORATADINE [Concomitant]
     Route: 065
  6. NASONEX [Concomitant]
     Indication: SINUSITIS
     Route: 065
  7. STARLIX [Concomitant]
     Indication: DIABETES MELLITUS
     Route: 065
  8. ZITHROMAX [Concomitant]
     Indication: SINUSITIS
     Route: 065

REACTIONS (4)
  - ACUTE MYOCARDIAL INFARCTION [None]
  - CORONARY ARTERY DISEASE [None]
  - ERECTILE DYSFUNCTION [None]
  - PHARYNGOLARYNGEAL PAIN [None]
